FAERS Safety Report 9565266 (Version 1)
Quarter: 2013Q3

REPORT INFORMATION
  Report Type: Spontaneous
  Country: US (occurrence: US)
  Receive Date: 20130930
  Receipt Date: 20130930
  Transmission Date: 20140515
  Serious: No
  Sender: FDA-Public Use
  Company Number: US-PFIZER INC-2013277464

PATIENT
  Age: 84 Year
  Sex: Female
  Weight: 63.49 kg

DRUGS (2)
  1. ADVIL PM [Suspect]
     Indication: ARTHRALGIA
     Dosage: TWO TABLETS, ONCE A DAY
     Route: 048
     Dates: start: 20130924
  2. BENAZEPRIL [Concomitant]
     Indication: HYPERTENSION
     Dosage: UNK

REACTIONS (6)
  - Feeling abnormal [Unknown]
  - Restlessness [Unknown]
  - Logorrhoea [Unknown]
  - Pain in extremity [Unknown]
  - Sleep disorder [Unknown]
  - Impaired work ability [Unknown]
